FAERS Safety Report 4498235-5 (Version None)
Quarter: 2004Q3

REPORT INFORMATION
  Report Type: 
  Country: None (occurrence: None)
  Receive Date: 20040927
  Receipt Date: 20040607
  Transmission Date: 20050211
  Serious: No
  Sender: FDA-Public Use
  Company Number: USA040669502

PATIENT
  Age: 9 Year
  Sex: Female

DRUGS (1)
  1. STRATTERA [Suspect]
     Dates: start: 20031001

REACTIONS (1)
  - SUBCUTANEOUS ABSCESS [None]
